FAERS Safety Report 24860320 (Version 1)
Quarter: 2025Q1

REPORT INFORMATION
  Report Type: Spontaneous
  Country: US (occurrence: US)
  Receive Date: 20250120
  Receipt Date: 20250120
  Transmission Date: 20250409
  Serious: Yes (Other)
  Sender: STRIDES
  Company Number: US-STRIDES ARCOLAB LIMITED-2024SP002672

PATIENT

DRUGS (1)
  1. METHOTREXATE [Suspect]
     Active Substance: METHOTREXATE
     Indication: Cutaneous T-cell lymphoma
     Route: 065

REACTIONS (6)
  - Dermatitis [Unknown]
  - Condition aggravated [Unknown]
  - Soft tissue disorder [Unknown]
  - Pain [Unknown]
  - Pigmentation disorder [Unknown]
  - Decreased appetite [Unknown]
